FAERS Safety Report 5118805-0 (Version None)
Quarter: 2006Q4

REPORT INFORMATION
  Report Type: 
  Country: None (occurrence: None)
  Receive Date: 20061002
  Receipt Date: 20050513
  Transmission Date: 20070319
  Serious: Yes (Death, Hospitalization, Other)
  Sender: FDA-Public Use
  Company Number: AT-BRISTOL-MYERS SQUIBB COMPANY-12967808

PATIENT
  Age: 57 Year
  Sex: Male

DRUGS (2)
  1. DASATINIB [Suspect]
     Indication: CHRONIC MYELOID LEUKAEMIA
     Dosage: INTERRUPTED ON 19-MAY-2005; RESTARTED AT 100 MG ON 08-JUN-05, CONTINUED UNTIL 14-JUN-05
     Route: 048
     Dates: start: 20050331
  2. LORAZEPAM [Concomitant]

REACTIONS (3)
  - BRONCHOPNEUMONIA [None]
  - PLEURAL EFFUSION [None]
  - PNEUMOCYSTIS JIROVECI PNEUMONIA [None]
